FAERS Safety Report 7718462-0 (Version None)
Quarter: 2011Q3

REPORT INFORMATION
  Report Type: 
  Country: None (occurrence: None)
  Receive Date: 20110824
  Receipt Date: 20110808
  Transmission Date: 20111222
  Serious: Yes (Death)
  Sender: FDA-Public Use
  Company Number: CN-ACCORD-010318

PATIENT
  Sex: Male

DRUGS (8)
  1. SODIUM BICARBONATE IN PLASTIC CONTAINER [Concomitant]
  2. PREDNISONE [Suspect]
     Indication: IMMUNOSUPPRESSION
  3. TACROLIMUS [Suspect]
     Indication: IMMUNOSUPPRESSION
     Dosage: ORAL
     Route: 048
  4. METHYLPREDNISOLONE [Suspect]
     Indication: IMMUNOSUPPRESSION
  5. SOMATOSTATIN (SOMATOSTATIN) [Concomitant]
  6. SODIUM BICARBONATE [Suspect]
     Indication: IMMUNOSUPPRESSION
     Dosage: 250.00-MG-1:00 TIMES/ PER-1.0DAY
  7. ASPIRIN [Concomitant]
  8. MYCOPHENOLATE MOFETIL [Suspect]
     Indication: IMMUNOSUPPRESSION
     Dosage: ORAL
     Route: 048

REACTIONS (1)
  - CARDIAC ARREST [None]
